FAERS Safety Report 6125499 (Version 12)
Quarter: 2013Q3

REPORT INFORMATION
  Report Type: Spontaneous
  Country: US (occurrence: US)
  Receive Date: 20060912
  Receipt Date: 20130726
  Transmission Date: 20140515
  Serious: Yes (Death, Hospitalization, Other)
  Sender: FDA-Public Use
  Company Number: PHEH2006US11226

PATIENT
  Age: 74 Year
  Sex: Female

DRUGS (9)
  1. AREDIA [Suspect]
     Route: 042
  2. ZOMETA [Suspect]
     Route: 042
  3. DYAZIDE [Concomitant]
  4. AMOXICILLIN [Concomitant]
  5. XELODA [Concomitant]
  6. COREG [Concomitant]
  7. LORTAB [Concomitant]
  8. ARANESP [Concomitant]
  9. LISINOPRIL [Concomitant]

REACTIONS (76)
  - Death [Fatal]
  - Nausea [Unknown]
  - Vomiting [Unknown]
  - Renal failure acute [Unknown]
  - Dehydration [Unknown]
  - Cardiac failure congestive [Unknown]
  - Osteonecrosis of jaw [Unknown]
  - General physical health deterioration [Unknown]
  - Pain [Unknown]
  - Anxiety [Unknown]
  - Secondary sequestrum [Unknown]
  - Decreased interest [Unknown]
  - Edentulous [Unknown]
  - Bone disorder [Unknown]
  - Purulence [Recovered/Resolved]
  - Erythema [Unknown]
  - Osteoporosis [Unknown]
  - Osteomyelitis [Unknown]
  - Wound complication [Unknown]
  - Gingival inflammation [Recovered/Resolved]
  - Aspiration [Unknown]
  - Dyspnoea [Unknown]
  - Cough [Unknown]
  - Hypoxia [Unknown]
  - Cardiomyopathy [Unknown]
  - Age-related macular degeneration [Unknown]
  - Vision blurred [Unknown]
  - Visual acuity reduced [Unknown]
  - Adenocarcinoma [Unknown]
  - Pulmonary mass [Unknown]
  - Cerebral atrophy [Unknown]
  - Cerebral small vessel ischaemic disease [Unknown]
  - Diverticulum [Unknown]
  - Osteoarthritis [Unknown]
  - Pneumonia [Unknown]
  - Pleural effusion [Recovering/Resolving]
  - Atelectasis [Unknown]
  - Emphysema [Unknown]
  - Goitre [Unknown]
  - Bundle branch block left [Unknown]
  - Heart valve incompetence [Unknown]
  - Ejection fraction decreased [Unknown]
  - Dilatation ventricular [Unknown]
  - Cataract [Unknown]
  - Vitreous detachment [Unknown]
  - Joint dislocation [Unknown]
  - Vertebral foraminal stenosis [Unknown]
  - Left ventricular dysfunction [Unknown]
  - Ascites [Unknown]
  - Infection [Unknown]
  - Abdominal discomfort [Unknown]
  - Decreased appetite [Unknown]
  - Weight decreased [Unknown]
  - Diarrhoea [Unknown]
  - Malaise [Unknown]
  - Fatigue [Unknown]
  - Sinusitis [Unknown]
  - Nasal turbinate abnormality [Unknown]
  - Balance disorder [Unknown]
  - Abdominal pain [Unknown]
  - Abscess jaw [Unknown]
  - Neck pain [Unknown]
  - Hypoaesthesia [Unknown]
  - Orthostatic hypotension [Unknown]
  - Fall [Unknown]
  - Oral pain [Unknown]
  - Oedema peripheral [Unknown]
  - Hypotension [Unknown]
  - Blindness [Unknown]
  - Atrioventricular block first degree [Unknown]
  - Deafness [Unknown]
  - Syncope [Unknown]
  - Left atrial dilatation [Unknown]
  - Aortic valve sclerosis [Unknown]
  - Cardiac septal hypertrophy [Unknown]
  - Tricuspid valve incompetence [Unknown]
